FAERS Safety Report 9317069 (Version 1)
Quarter: 2013Q2

REPORT INFORMATION
  Report Type: Spontaneous
  Country: US (occurrence: US)
  Receive Date: 20130530
  Receipt Date: 20130530
  Transmission Date: 20140414
  Serious: No
  Sender: FDA-Public Use
  Company Number: US-NOVEN-12US004714

PATIENT
  Age: 61 Year
  Sex: Male

DRUGS (1)
  1. DAYTRANA [Suspect]
     Indication: DRUG ABUSER
     Dosage: ONE 20MG AND ONE 30MG PATCH, QD
     Route: 062

REACTIONS (4)
  - Off label use [Not Recovered/Not Resolved]
  - Wrong technique in drug usage process [Not Recovered/Not Resolved]
  - Drug prescribing error [Not Recovered/Not Resolved]
  - No adverse event [None]
